FAERS Safety Report 19666120 (Version 1)
Quarter: 2021Q3

REPORT INFORMATION
  Report Type: Spontaneous
  Country: US (occurrence: US)
  Receive Date: 20210805
  Receipt Date: 20210805
  Transmission Date: 20211014
  Serious: No
  Sender: FDA-Public Use
  Company Number: US-AMGEN-USASP2021114833

PATIENT
  Age: 69 Year
  Sex: Female

DRUGS (1)
  1. EVENITY [Suspect]
     Active Substance: ROMOSOZUMAB-AQQG
     Indication: OSTEOPOROSIS POSTMENOPAUSAL
     Dosage: 210 MG
     Route: 065
     Dates: start: 202105

REACTIONS (5)
  - Rectal discharge [Unknown]
  - Feeling abnormal [Unknown]
  - Vaginal discharge [Unknown]
  - Vein disorder [Unknown]
  - Rash vesicular [Unknown]

NARRATIVE: CASE EVENT DATE: 2021
